FAERS Safety Report 7690228-X (Version None)
Quarter: 2011Q3

REPORT INFORMATION
  Report Type: 
  Country: None (occurrence: None)
  Receive Date: 20110817
  Receipt Date: 20110817
  Transmission Date: 20111222
  Serious: No
  Sender: FDA-Public Use
  Company Number: None

PATIENT
  Sex: Female

DRUGS (11)
  1. LEXAPRO [Concomitant]
  2. TARCEVA [Suspect]
     Dosage: 150MG ONE DAILY PO
     Route: 048
     Dates: start: 20100324
  3. ELAVIL [Concomitant]
  4. CENTRUM [Concomitant]
  5. VIT D [Concomitant]
  6. FISH OIL [Concomitant]
  7. PROAIR HFA [Concomitant]
  8. TRAZODONE HCL [Concomitant]
  9. PRILOSEC [Concomitant]
  10. PREVIDENT [Concomitant]
  11. CALCIUM CARBONATE [Concomitant]

REACTIONS (2)
  - DIARRHOEA [None]
  - DRUG INEFFECTIVE [None]
